FAERS Safety Report 17636102 (Version 1)
Quarter: 2020Q2

REPORT INFORMATION
  Report Type: Spontaneous
  Country: US (occurrence: US)
  Receive Date: 20200403
  Receipt Date: 20200403
  Transmission Date: 20200713
  Serious: Yes (Other)
  Sender: FDA-Public Use
  Company Number: None

PATIENT
  Sex: Male
  Weight: 74.84 kg

DRUGS (16)
  1. TRIAMCINOLONE [Concomitant]
     Active Substance: TRIAMCINOLONE
  2. TOLTERODINE [Concomitant]
     Active Substance: TOLTERODINE
  3. FLUTICASONE PROPIONATE NASAL SPRAY USP [Suspect]
     Active Substance: FLUTICASONE PROPIONATE
     Indication: HYPERSENSITIVITY
     Dosage: ?          QUANTITY:2 PUFFS;?
     Route: 045
     Dates: start: 20200118
  4. KETACONAZOLE [Concomitant]
     Active Substance: KETOCONAZOLE
  5. ZYRTEC [Concomitant]
     Active Substance: CETIRIZINE HYDROCHLORIDE
  6. BUPROPRION [Concomitant]
     Active Substance: BUPROPION
  7. FINASTERIDE. [Concomitant]
     Active Substance: FINASTERIDE
  8. TAMSOLOSIN [Concomitant]
  9. FISH OIL [Concomitant]
     Active Substance: FISH OIL
  10. TRAMADOL. [Concomitant]
     Active Substance: TRAMADOL
  11. DENTAL MOUTH APPLIANCE [Concomitant]
  12. POLYVINYL ALCOHOL-PROVIDONE PF [Concomitant]
  13. MELOXICAM. [Concomitant]
     Active Substance: MELOXICAM
  14. CALCIUM + D [Concomitant]
     Active Substance: CALCIUM\VITAMIN D
  15. MULTIVITAMIN [Concomitant]
     Active Substance: VITAMINS
  16. TUMERSAID [Concomitant]

REACTIONS (3)
  - Nasal ulcer [None]
  - Rhinorrhoea [None]
  - Nasal congestion [None]
